FAERS Safety Report 16672710 (Version 1)
Quarter: 2019Q3

REPORT INFORMATION
  Report Type: Spontaneous
  Country: US (occurrence: US)
  Receive Date: 20190620
  Receipt Date: 20190620
  Transmission Date: 20191004
  Serious: Yes (Hospitalization, Disabling, Other)
  Sender: FDA-Public Use
  Company Number: None

PATIENT
  Age: 68 Year
  Weight: 110.25 kg

DRUGS (30)
  1. HALDOL [Suspect]
     Active Substance: HALOPERIDOL
     Indication: ANGER
  2. METFORMIN [Concomitant]
     Active Substance: METFORMIN HYDROCHLORIDE
  3. OLIVE LEAF [Concomitant]
  4. HALDOL [Suspect]
     Active Substance: HALOPERIDOL
     Indication: DEPRESSION
  5. INHALER [Concomitant]
     Active Substance: UNSPECIFIED INGREDIENT
  6. MAGNESIUM [Concomitant]
     Active Substance: MAGNESIUM
  7. ALPHA LIPOIC ACID [Concomitant]
     Active Substance: .ALPHA.-LIPOIC ACID
  8. CALCIUM [Concomitant]
     Active Substance: CALCIUM
  9. GRAPESEED [Concomitant]
  10. HALDOL [Suspect]
     Active Substance: HALOPERIDOL
     Indication: FEAR
     Dosage: ?          QUANTITY:8 TABLESPOON(S);?
     Route: 048
     Dates: start: 19850705, end: 19850815
  11. TRILAFON [Suspect]
     Active Substance: PERPHENAZINE
  12. SINGULAIR [Concomitant]
     Active Substance: MONTELUKAST SODIUM
  13. NIACIN. [Concomitant]
     Active Substance: NIACIN
  14. COQ10 [Concomitant]
     Active Substance: UBIDECARENONE
  15. PROLIXIN [Suspect]
     Active Substance: FLUPHENAZINE HYDROCHLORIDE
     Indication: DEPRESSION
     Dosage: ?          QUANTITY:4 DF DOSAGE FORM;?
     Route: 048
     Dates: start: 19850705, end: 19850815
  16. MULTI VITAMIN [Concomitant]
     Active Substance: VITAMINS
  17. MILK THISTLE [Concomitant]
     Active Substance: DIETARY SUPPLEMENT\HERBALS\MILK THISTLE
  18. HALDOL [Suspect]
     Active Substance: HALOPERIDOL
     Indication: ANGER
  19. HALDOL [Suspect]
     Active Substance: HALOPERIDOL
     Indication: DEPRESSION
  20. HALDOL [Suspect]
     Active Substance: HALOPERIDOL
     Indication: FEAR
  21. VITAMIN B12 [Concomitant]
     Active Substance: CYANOCOBALAMIN
  22. C [Concomitant]
  23. FISH OIL [Concomitant]
     Active Substance: FISH OIL
  24. VITAMIN D3 [Concomitant]
     Active Substance: CHOLECALCIFEROL
  25. HALDOL [Suspect]
     Active Substance: HALOPERIDOL
     Indication: PAIN
  26. LITHIUM. [Suspect]
     Active Substance: LITHIUM
  27. LOXIPINE [Concomitant]
  28. PRIVASTATIN [Concomitant]
  29. CHROMIUM PICONOLATE [Concomitant]
  30. VITAMIN B COMPLEX [Concomitant]
     Active Substance: CYANOCOBALAMIN\DEXPANTHENOL\NIACINAMIDE\PYRIDOXINE HYDROCHLORIDE\RIBOFLAVIN 5^-PHOSPHATE SODIUM\THIAMINE HYDROCHLORIDE\VITAMIN B COMPLEX

REACTIONS (6)
  - Mental impairment [None]
  - Chest pain [None]
  - Premenstrual syndrome [None]
  - Palpitations [None]
  - Disability [None]
  - Muscle disorder [None]

NARRATIVE: CASE EVENT DATE: 19850705
